FAERS Safety Report 9234245 (Version 6)
Quarter: 2013Q4

REPORT INFORMATION
  Report Type: Report from Study
  Country: AU (occurrence: AU)
  Receive Date: 20130416
  Receipt Date: 20131202
  Transmission Date: 20140711
  Serious: Yes (Hospitalization, Disabling, Other)
  Sender: FDA-Public Use
  Company Number: AU-ROCHE-1214900

PATIENT
  Age: 63 Year
  Sex: Male

DRUGS (6)
  1. ACTEMRA [Suspect]
     Indication: RHEUMATOID ARTHRITIS
     Route: 042
     Dates: start: 201111, end: 20121105
  2. ACTEMRA [Suspect]
     Indication: RHEUMATOID ARTHRITIS
     Route: 042
     Dates: start: 20110708, end: 20130228
  3. ACTEMRA [Suspect]
     Indication: PAIN
  4. MABTHERA [Suspect]
     Indication: RHEUMATOID ARTHRITIS
     Route: 065
  5. OXYGEN [Concomitant]
     Indication: IDIOPATHIC PULMONARY FIBROSIS
     Dosage: 16 HOURS A DAY
     Route: 065
  6. NIZATIDINE [Concomitant]

REACTIONS (10)
  - Blindness [Not Recovered/Not Resolved]
  - Eye pain [Not Recovered/Not Resolved]
  - Oedema peripheral [Not Recovered/Not Resolved]
  - Central nervous system infection [Recovering/Resolving]
  - Neoplasm malignant [Unknown]
  - Abdominal mass [Not Recovered/Not Resolved]
  - Nasopharyngeal cancer [Unknown]
  - Orbital infection [Recovered/Resolved]
  - Cryptococcosis [Unknown]
  - Drug ineffective [Unknown]
